FAERS Safety Report 24964244 (Version 1)
Quarter: 2025Q1

REPORT INFORMATION
  Report Type: Spontaneous
  Country: JP (occurrence: JP)
  Receive Date: 20250213
  Receipt Date: 20250213
  Transmission Date: 20250409
  Serious: Yes (Life-Threatening, Hospitalization, Other)
  Sender: UNICHEM
  Company Number: JP-UNICHEM LABORATORIES LIMITED-UNI-2025-JP-000251

PATIENT

DRUGS (3)
  1. QUETIAPINE [Suspect]
     Active Substance: QUETIAPINE
     Indication: Product used for unknown indication
     Route: 048
  2. TRAZODONE [Concomitant]
     Active Substance: TRAZODONE HYDROCHLORIDE
     Indication: Product used for unknown indication
     Route: 048
  3. LEVOMEPROMAZINE [Concomitant]
     Active Substance: LEVOMEPROMAZINE
     Indication: Product used for unknown indication
     Route: 048

REACTIONS (7)
  - Hypoxia [Unknown]
  - Toxicity to various agents [Unknown]
  - Altered state of consciousness [Unknown]
  - Overdose [Unknown]
  - Electrocardiogram QRS complex prolonged [Unknown]
  - Coma scale abnormal [Unknown]
  - Hypotension [Unknown]
